FAERS Safety Report 4650421-7 (Version None)
Quarter: 2005Q2

REPORT INFORMATION
  Report Type: 
  Country: None (occurrence: None)
  Receive Date: 20050428
  Receipt Date: 20050415
  Transmission Date: 20051028
  Serious: Yes (Hospitalization)
  Sender: FDA-Public Use
  Company Number: 2005SP000277

PATIENT
  Age: 68 Year
  Sex: Female
  Weight: 36.2878 kg

DRUGS (3)
  1. XOPENEX [Suspect]
     Dosage: 0.63 MG/3ML;4 TIMES A DAY;INHALATION
     Route: 055
     Dates: start: 20041001
  2. XOPENEX [Suspect]
  3. UNIPHYLL [Concomitant]

REACTIONS (3)
  - CARDIAC FAILURE CONGESTIVE [None]
  - CHRONIC OBSTRUCTIVE PULMONARY DISEASE [None]
  - CONDITION AGGRAVATED [None]
